FAERS Safety Report 15312851 (Version 5)
Quarter: 2019Q1

REPORT INFORMATION
  Report Type: Spontaneous
  Country: US (occurrence: US)
  Receive Date: 20180823
  Receipt Date: 20190327
  Transmission Date: 20190417
  Serious: Yes (Death, Hospitalization)
  Sender: FDA-Public Use
  Company Number: US-VIFOR (INTERNATIONAL) INC.-VIT-2018-08337

PATIENT
  Age: 68 Year
  Sex: Female

DRUGS (21)
  1. PRAVASTATIN SODIUM. [Concomitant]
     Active Substance: PRAVASTATIN SODIUM
  2. LORATADINE. [Concomitant]
     Active Substance: LORATADINE
  3. GLYCOLAX [Concomitant]
     Active Substance: POLYETHYLENE GLYCOL 3350
  4. HUMALIN [Concomitant]
     Active Substance: INSULIN NOS
  5. COLACE CLEAR [Concomitant]
     Active Substance: DOCUSATE SODIUM
  6. SYMBICORT [Concomitant]
     Active Substance: BUDESONIDE\FORMOTEROL FUMARATE DIHYDRATE
  7. LISINOPRIL. [Concomitant]
     Active Substance: LISINOPRIL
  8. DOXYCYCLINE HYCLATE. [Concomitant]
     Active Substance: DOXYCYCLINE HYCLATE
  9. LASIX [Concomitant]
     Active Substance: FUROSEMIDE
  10. CARTIA XT [Concomitant]
     Active Substance: DILTIAZEM HYDROCHLORIDE
  11. SINGULAIR [Concomitant]
     Active Substance: MONTELUKAST SODIUM
  12. SOTALOL HCL [Concomitant]
     Active Substance: SOTALOL
  13. FERROUS SULFATE. [Concomitant]
     Active Substance: FERROUS SULFATE
  14. VELTASSA [Suspect]
     Active Substance: PATIROMER
     Indication: HYPERKALAEMIA
     Route: 048
     Dates: start: 20180724
  15. PANTOPRAZOLE SODIUM. [Concomitant]
     Active Substance: PANTOPRAZOLE SODIUM
  16. ULTRAM [Concomitant]
     Active Substance: TRAMADOL HYDROCHLORIDE
  17. NEURONTIN [Concomitant]
     Active Substance: GABAPENTIN
  18. HYDRALAZINE HCL [Concomitant]
     Active Substance: HYDRALAZINE HYDROCHLORIDE
  19. VITAMIN B COMPLEX [Concomitant]
     Active Substance: CYANOCOBALAMIN\DEXPANTHENOL\NIACINAMIDE\PYRIDOXINE HYDROCHLORIDE\RIBOFLAVIN 5^-PHOSPHATE SODIUM\THIAMINE HYDROCHLORIDE\VITAMIN B COMPLEX
  20. MUCINEX D [Concomitant]
     Active Substance: GUAIFENESIN\PSEUDOEPHEDRINE HYDROCHLORIDE
  21. FERROUS SULFATE. [Concomitant]
     Active Substance: FERROUS SULFATE

REACTIONS (4)
  - Death [Fatal]
  - Catheterisation cardiac [Unknown]
  - Blood potassium increased [Unknown]
  - Hospitalisation [Unknown]

NARRATIVE: CASE EVENT DATE: 20180820
